FAERS Safety Report 19503846 (Version 2)
Quarter: 2022Q3

REPORT INFORMATION
  Report Type: Spontaneous
  Country: US (occurrence: US)
  Receive Date: 20210707
  Receipt Date: 20220914
  Transmission Date: 20221027
  Serious: No
  Sender: FDA-Public Use
  Company Number: US-PFIZER INC-2021253602

PATIENT
  Age: 69 Year
  Sex: Male
  Weight: 77.098 kg

DRUGS (5)
  1. XELJANZ XR [Suspect]
     Active Substance: TOFACITINIB CITRATE
     Dosage: 11 MG, UNK
  2. PANTOPRAZOLE [Concomitant]
     Active Substance: PANTOPRAZOLE
     Indication: Abdominal discomfort
     Dosage: 40 MG
     Dates: start: 2020
  3. AMOXICILLIN [Concomitant]
     Active Substance: AMOXICILLIN
     Indication: Diverticulitis
     Dosage: UNK
  4. PREDNISONE [Concomitant]
     Active Substance: PREDNISONE
     Indication: Arthralgia
     Dosage: 5 MG (ON/OFF, MOST RECENT LAST FALL (NOV/DEC))
  5. VITAMIN B12 [Concomitant]
     Active Substance: CYANOCOBALAMIN
     Indication: Anaemia
     Dosage: 1000 MG

REACTIONS (4)
  - Gastric disorder [Unknown]
  - Diverticulum [Unknown]
  - Dysaesthesia [Unknown]
  - Trigger finger [Unknown]
